FAERS Safety Report 5283512-0 (Version None)
Quarter: 2007Q2

REPORT INFORMATION
  Report Type: 
  Country: None (occurrence: None)
  Receive Date: 20070402
  Receipt Date: 20070323
  Transmission Date: 20071010
  Serious: Yes (Other)
  Sender: FDA-Public Use
  Company Number: 2007AC00494

PATIENT
  Age: 19460 Day
  Sex: Male
  Weight: 85 kg

DRUGS (4)
  1. CANDESARTAN [Suspect]
     Indication: HYPERTENSION
     Dates: start: 20070309, end: 20070316
  2. HYDROCHLOROTHIAZIDE [Concomitant]
     Dates: start: 20050101
  3. ZOPICLON [Concomitant]
     Dates: start: 20000101
  4. ATACAND [Concomitant]
     Indication: HYPERTENSION
     Route: 048

REACTIONS (4)
  - HEADACHE [None]
  - HYPERTENSION [None]
  - NAUSEA [None]
  - RESTLESSNESS [None]
